FAERS Safety Report 8041877-0 (Version None)
Quarter: 2012Q1

REPORT INFORMATION
  Report Type: 
  Country: None (occurrence: None)
  Receive Date: 20120112
  Receipt Date: 20120111
  Transmission Date: 20120608
  Serious: Yes (Death, Life-Threatening, Hospitalization)
  Sender: FDA-Public Use
  Company Number: KR-BAYER-2011-042636

PATIENT
  Age: 69 Year
  Sex: Female
  Weight: 55 kg

DRUGS (54)
  1. SORAFENIB (RAF KINASE INHIBITOR) [Suspect]
     Dosage: 200 MG, QD(AM)
     Route: 048
     Dates: start: 20110615, end: 20110615
  2. HEPATAMINE [Concomitant]
     Indication: MEDICAL DIET
     Dosage: 500 MG, QD
     Route: 042
     Dates: start: 20110518, end: 20110525
  3. MAGALDRATE W/SIMETICONE [Concomitant]
     Indication: ENDOSCOPIC RETROGRADE CHOLANGIOPANCREATOGRAPHY
     Dosage: 10 ML, QD
     Route: 048
     Dates: start: 20110518, end: 20110518
  4. FLUNIL [Concomitant]
     Indication: BILIARY DRAINAGE
     Dosage: 0.5 MG, QD
     Route: 042
     Dates: start: 20110518, end: 20110518
  5. ALGIRON [Concomitant]
     Indication: ABDOMINAL PAIN
     Dosage: 20 MG, QD
     Route: 042
     Dates: start: 20110518, end: 20110518
  6. ALGIRON [Concomitant]
     Dosage: 5 MG, QD
     Route: 042
     Dates: start: 20110530, end: 20110531
  7. ALDACTONE [Concomitant]
     Indication: ABDOMINAL DISTENSION
     Dosage: 50 MG, QD
     Route: 048
     Dates: start: 20110529, end: 20110615
  8. SODIUM CHLORIDE [Concomitant]
     Indication: PROPHYLAXIS AGAINST DEHYDRATION
     Dosage: 1000 ML, QD
     Route: 042
     Dates: start: 20110601, end: 20110601
  9. MEK INHIBITOR (DIHYDROXYPROP-DIFLU-METHOXYPHEN-CYCLOPROPA-SULFAMI) [Suspect]
     Dosage: 50 MG, QD(AM)
     Route: 048
     Dates: start: 20110615, end: 20110615
  10. MEGACE [Concomitant]
     Dosage: 10 ML, QD
     Dates: start: 20110522, end: 20110606
  11. THIAMINE HCL [Concomitant]
     Indication: HEPATITIS C
     Dosage: 20 MG, BID
     Route: 048
     Dates: start: 20110325, end: 20110518
  12. ALGIRON [Concomitant]
     Dosage: 5 MG, BID
     Route: 042
     Dates: start: 20110524, end: 20110524
  13. DUPHALAC [Concomitant]
     Indication: CONSTIPATION
     Dosage: 15 ML, BID
     Route: 048
     Dates: start: 20110603, end: 20110605
  14. MAGNESIUM OXIDE [Concomitant]
     Indication: CONSTIPATION
     Dosage: 500 MG, BID
     Route: 048
     Dates: start: 20110601, end: 20110607
  15. MEK INHIBITOR (DIHYDROXYPROP-DIFLU-METHOXYPHEN-CYCLOPROPA-SULFAMI) [Suspect]
     Indication: HEPATIC NEOPLASM MALIGNANT
     Dosage: 50 MG, QD(PM)
     Route: 048
     Dates: start: 20110612, end: 20110612
  16. SORAFENIB (RAF KINASE INHIBITOR) [Suspect]
     Dosage: 600 MG, QD(200 AM/ 400 PM)
     Dates: start: 20110613, end: 20110614
  17. DEXTROSE [Concomitant]
     Dosage: 500 ML, QD
     Route: 042
     Dates: start: 20110530, end: 20110601
  18. MEGACE [Concomitant]
     Indication: DECREASED APPETITE
     Dosage: 10 ML, BID
     Route: 048
     Dates: start: 20110519, end: 20110520
  19. ACETAMINOPHEN [Concomitant]
     Indication: HEADACHE
     Dosage: 650 MG, QD
     Route: 048
     Dates: start: 20110520, end: 20110520
  20. FUROSEMIDE [Concomitant]
     Indication: ABDOMINAL DISTENSION
     Dosage: 20 MG, QD
     Route: 048
     Dates: start: 20110529, end: 20110615
  21. DEXTROSE [Concomitant]
     Dosage: 1000 ML, QD
     Route: 042
     Dates: start: 20110519, end: 20110519
  22. HUMULIN R [Concomitant]
     Indication: DIABETES MELLITUS
     Dosage: 2 IU, QD
     Route: 042
     Dates: start: 20110603, end: 20110603
  23. LIDOCAINE HYDROCHLORIDE [Concomitant]
     Indication: LOCAL ANAESTHESIA
     Dosage: 2 ML, QD
     Route: 058
     Dates: start: 20110601, end: 20110601
  24. DEXTROSE [Concomitant]
     Dosage: 500 ML, QD
     Route: 042
     Dates: start: 20110519, end: 20110523
  25. NORVASC [Concomitant]
     Indication: HYPERTENSION
     Dosage: 5 MG, QD
     Route: 048
     Dates: start: 20110406, end: 20110619
  26. FUTHAN [Concomitant]
     Indication: LIPASE INCREASED
  27. THIAMINE HCL [Concomitant]
     Dosage: 10 MG, TID
     Route: 048
     Dates: start: 20110519, end: 20110606
  28. CALCIUM POLYCARBONATE [Concomitant]
     Indication: CONSTIPATION PROPHYLAXIS
     Dosage: 625 MG, TID
  29. ULTRACET [Concomitant]
     Indication: ABDOMINAL PAIN
     Dosage: 1 TAB TID
     Dates: start: 20110602, end: 20110605
  30. DEXTROSE [Concomitant]
     Indication: PROPHYLAXIS AGAINST DEHYDRATION
     Dosage: 500 ML, BID
     Route: 042
     Dates: start: 20110518, end: 20110518
  31. HEPATAMINE [Concomitant]
     Indication: ASTHENIA
  32. MORPHINE [Concomitant]
     Indication: ABDOMINAL PAIN
     Dosage: 3 MG, QD
     Route: 058
     Dates: start: 20110518, end: 20110518
  33. MORPHINE [Concomitant]
     Indication: FLANK PAIN
     Dosage: 3 MG, QD
     Route: 058
     Dates: start: 20110519, end: 20110519
  34. MEPERIDINE HCL [Concomitant]
     Indication: ABDOMINAL PAIN
     Dosage: 25 MG, QD
     Route: 042
     Dates: start: 20110518, end: 20110518
  35. FUTHAN [Concomitant]
     Indication: AMYLASE INCREASED
     Dosage: 50 MG, QD
     Route: 042
     Dates: start: 20110518, end: 20110523
  36. ZENOL [CAMPHOR,DIPHENHYDRAMINE HYDROCHLORIDE,GLYCOL SALICYLATE,MEN [Concomitant]
     Dosage: 2 EA BID
     Route: 061
     Dates: start: 20110531, end: 20110531
  37. URSODIOL [Concomitant]
     Indication: HEPATITIS C
     Dosage: 200 MG, BID
     Route: 048
     Dates: start: 20110325, end: 20110516
  38. MIDAZOLAM [Concomitant]
     Indication: BILIARY DRAINAGE
     Dosage: 5 MG, QD
     Route: 042
     Dates: start: 20110518, end: 20110518
  39. ALBUMIN (HUMAN) [Concomitant]
     Indication: HYPOALBUMINAEMIA
     Dosage: 100 ML, QD
     Route: 042
     Dates: start: 20110529, end: 20110601
  40. CELEBREX [Concomitant]
     Indication: BACK PAIN
     Dosage: 200 MG, BID
     Route: 048
     Dates: start: 20110601, end: 20110615
  41. SORAFENIB (RAF KINASE INHIBITOR) [Suspect]
     Indication: HEPATIC NEOPLASM MALIGNANT
     Dosage: 400 MG, QD(PM)
     Route: 048
     Dates: start: 20110612, end: 20110612
  42. LACTULOSE [Concomitant]
     Indication: CONSTIPATION PROPHYLAXIS
     Dosage: 1 PK BID
     Dates: start: 20110523, end: 20110523
  43. MEK INHIBITOR (DIHYDROXYPROP-DIFLU-METHOXYPHEN-CYCLOPROPA-SULFAMI) [Suspect]
     Dosage: 50 MG, BID (50 AM/50 PM)
     Route: 048
     Dates: start: 20110613, end: 20110614
  44. ACETYLCYSTEINE [Concomitant]
     Indication: PROPHYLAXIS
     Dosage: 600 MG, QD
     Route: 048
     Dates: start: 20110530, end: 20110530
  45. ALGIRON [Concomitant]
     Dosage: 5 MG, QD
     Route: 042
     Dates: start: 20110523, end: 20110523
  46. DURAGESIC-100 [Concomitant]
     Indication: BACK PAIN
     Dosage: 12 ?G, QOD
     Route: 062
     Dates: start: 20110601, end: 20110604
  47. ZENOL [CAMPHOR,DIPHENHYDRAMINE HYDROCHLORIDE,GLYCOL SALICYLATE,MEN [Concomitant]
     Indication: BACK PAIN
     Dosage: 2 EA BID
     Route: 061
     Dates: start: 20110526, end: 20110527
  48. XYLOCAINE [Concomitant]
     Indication: LOCAL ANAESTHESIA
     Dosage: 3 CC QD
     Dates: start: 20110518, end: 20110518
  49. URSODIOL [Concomitant]
     Dosage: 200 MG, TID
     Route: 048
     Dates: start: 20110519, end: 20110606
  50. LEVOSULPIRIDE [Concomitant]
     Indication: DYSPEPSIA
     Dosage: 25 MG, QD
     Dates: start: 20110521, end: 20110521
  51. FAMOTIDINE [Concomitant]
     Indication: PROPHYLAXIS AGAINST GASTROINTESTINAL ULCER
     Dosage: 20 MG, BID
     Route: 042
     Dates: start: 20110519, end: 20110601
  52. ANTIBIOTICS [Concomitant]
     Indication: DIARRHOEA
     Dosage: 300 MG, TID
     Route: 048
     Dates: start: 20110525, end: 20110605
  53. PROPRANOLOL [Concomitant]
     Indication: PORTAL HYPERTENSION
     Dosage: 20 MG, BID
     Route: 048
     Dates: start: 20110601, end: 20110605
  54. METOCLOPRAMIDE [Concomitant]
     Indication: NAUSEA
     Dosage: 2.5 MG, TID
     Route: 048
     Dates: start: 20110601, end: 20110601

REACTIONS (2)
  - TUMOUR LYSIS SYNDROME [None]
  - BLOOD BILIRUBIN INCREASED [None]
